FAERS Safety Report 17890074 (Version 2)
Quarter: 2021Q1

REPORT INFORMATION
  Report Type: Spontaneous
  Country: DE (occurrence: DE)
  Receive Date: 20200612
  Receipt Date: 20210112
  Transmission Date: 20210419
  Serious: Yes (Other)
  Sender: FDA-Public Use
  Company Number: DE-PFIZER INC-2020228590

PATIENT
  Age: 36 Year
  Sex: Male
  Weight: 66 kg

DRUGS (5)
  1. SHINGRIX [Concomitant]
     Active Substance: RECOMBINANT VARICELLA ZOSTER VIRUS (VZV) GLYCOPROTEIN E
     Indication: IMMUNISATION
     Dosage: UNK
     Route: 030
     Dates: start: 20200430
  2. XELJANZ [Suspect]
     Active Substance: TOFACITINIB CITRATE
     Indication: COLITIS ULCERATIVE
     Dosage: 10 MG, 2X/DAY
     Dates: start: 20200504, end: 20200515
  3. TACROLIMUS. [Concomitant]
     Active Substance: TACROLIMUS
     Indication: COLITIS ULCERATIVE
     Dosage: 7 MG, DAILY
     Route: 048
     Dates: start: 20200311, end: 20200426
  4. FLIXABI [Concomitant]
     Active Substance: INFLIXIMAB
     Indication: COLITIS ULCERATIVE
     Dosage: 400 MG, DAILY
     Route: 042
     Dates: start: 20200519
  5. AZATHIOPRIN [Concomitant]
     Active Substance: AZATHIOPRINE
     Indication: COLITIS ULCERATIVE
     Dosage: 50 MG, DAILY
     Route: 048
     Dates: start: 20200518

REACTIONS (8)
  - Pyrexia [Recovered/Resolved]
  - Malaise [Recovering/Resolving]
  - C-reactive protein increased [Unknown]
  - Fatigue [Unknown]
  - Thrombocytosis [Unknown]
  - Inflammatory marker increased [Recovering/Resolving]
  - Anaemia [Unknown]
  - Colitis ulcerative [Unknown]

NARRATIVE: CASE EVENT DATE: 202005
